FAERS Safety Report 24332322 (Version 1)
Quarter: 2024Q3

REPORT INFORMATION
  Report Type: Spontaneous
  Country: CN (occurrence: CN)
  Receive Date: 20240918
  Receipt Date: 20240918
  Transmission Date: 20241017
  Serious: Yes (Other)
  Sender: AMNEAL
  Company Number: CN-AMNEAL PHARMACEUTICALS-2024-AMRX-03391

PATIENT
  Age: 19 Year
  Sex: Male

DRUGS (2)
  1. DIVALPROEX SODIUM [Suspect]
     Active Substance: DIVALPROEX SODIUM
     Indication: Bipolar disorder
     Dosage: 500 MG/D (THAT IS 333 MG SODIUM VALPROATE AND 145 MG VALPROIC ACID, EQUALLING 500 MG SODIUM VALPROAT
     Route: 065
     Dates: start: 201601
  2. DIVALPROEX SODIUM [Suspect]
     Active Substance: DIVALPROEX SODIUM
     Dosage: DOSAGE WAS INCREASED GRADUALLY TO 1250 MG/D IN 2 WEEKS
     Route: 065

REACTIONS (1)
  - Pleural effusion [Recovered/Resolved]
